FAERS Safety Report 5990716-8 (Version None)
Quarter: 2008Q4

REPORT INFORMATION
  Report Type: 
  Country: None (occurrence: None)
  Receive Date: 20081211
  Receipt Date: 20081204
  Transmission Date: 20090506
  Serious: Yes (Hospitalization, Other)
  Sender: FDA-Public Use
  Company Number: PHHY2008BR30813

PATIENT
  Age: 64 Year
  Sex: Male
  Weight: 80 kg

DRUGS (3)
  1. DIOVAN [Suspect]
     Indication: HYPERTENSION
     Dosage: 1 TABLET (320 MG) PER DAY
     Route: 048
  2. DIOVAN [Suspect]
     Dosage: 160 MG, QD
     Route: 048
  3. ATENOLOL [Suspect]
     Indication: HYPERTENSION
     Dosage: 1 TABLET (50 MG) PER DAY
     Route: 048

REACTIONS (2)
  - BLOOD PRESSURE DECREASED [None]
  - INFARCTION [None]
